FAERS Safety Report 7815358-0 (Version None)
Quarter: 2011Q4

REPORT INFORMATION
  Report Type: 
  Country: None (occurrence: None)
  Receive Date: 20111014
  Receipt Date: 20111007
  Transmission Date: 20120403
  Serious: Yes (Life-Threatening, Hospitalization, Disabling)
  Sender: FDA-Public Use
  Company Number: US-MERCK-1103USA00415

PATIENT
  Age: 61 Year
  Sex: Female

DRUGS (9)
  1. LIPITOR [Concomitant]
     Route: 065
  2. METFORMIN [Concomitant]
     Route: 065
  3. JANUVIA [Suspect]
     Route: 048
     Dates: start: 20100501, end: 20100901
  4. CENTRUM SILVER [Concomitant]
     Route: 065
  5. ASPIRIN [Concomitant]
     Route: 065
  6. PLAVIX [Concomitant]
     Route: 065
  7. EFFEXOR [Concomitant]
     Route: 065
  8. PERCOCET [Concomitant]
     Route: 065
  9. METOPROLOL [Concomitant]
     Route: 065

REACTIONS (1)
  - HEPATITIS TOXIC [None]
